FAERS Safety Report 8078474-7 (Version None)
Quarter: 2012Q1

REPORT INFORMATION
  Report Type: 
  Country: None (occurrence: None)
  Receive Date: 20120123
  Receipt Date: 20111229
  Transmission Date: 20120608
  Serious: Yes (Hospitalization)
  Sender: FDA-Public Use
  Company Number: CC 2011-359

PATIENT
  Age: 78 Year
  Sex: Female

DRUGS (1)
  1. DOCUSATE NA 100MG SOFTGEL / BANNER [Suspect]

REACTIONS (1)
  - THROAT IRRITATION [None]
